FAERS Safety Report 5065285-X (Version None)
Quarter: 2006Q3

REPORT INFORMATION
  Report Type: 
  Country: None (occurrence: None)
  Receive Date: 20060707
  Receipt Date: 20050708
  Transmission Date: 20061208
  Serious: Yes (Hospitalization)
  Sender: FDA-Public Use
  Company Number: SUS1-2005-00562

PATIENT
  Age: 20 Year
  Sex: Male

DRUGS (1)
  1. PENTASA [Suspect]
     Indication: COLITIS ULCERATIVE
     Dosage: 2250 MG DAILY, ORAL
     Route: 048
     Dates: start: 20040707, end: 20040720

REACTIONS (2)
  - CONDITION AGGRAVATED [None]
  - PANCREATITIS ACUTE [None]
